FAERS Safety Report 7370552-0 (Version None)
Quarter: 2011Q1

REPORT INFORMATION
  Report Type: 
  Country: None (occurrence: None)
  Receive Date: 20110323
  Receipt Date: 20110309
  Transmission Date: 20110831
  Serious: No
  Sender: FDA-Public Use
  Company Number: US-BAYER-2011-021750

PATIENT
  Age: 56 Year
  Sex: Female

DRUGS (1)
  1. ALEVE (CAPLET) [Suspect]
     Dosage: 40 DF, ONCE, UNKNOWN BOTTLE COUNT
     Route: 048
     Dates: start: 20110309

REACTIONS (1)
  - NO ADVERSE EVENT [None]
